FAERS Safety Report 7513656-1 (Version None)
Quarter: 2011Q2

REPORT INFORMATION
  Report Type: 
  Country: None (occurrence: None)
  Receive Date: 20110531
  Receipt Date: 20110124
  Transmission Date: 20111010
  Serious: Yes (Hospitalization)
  Sender: FDA-Public Use
  Company Number: GB-BAYER-201043419GPV

PATIENT
  Age: 50 Year
  Sex: Male
  Weight: 62 kg

DRUGS (1)
  1. PRIMOVIST [Suspect]
     Indication: CHOLANGITIS
     Dosage: 10 ML, UNK
     Route: 042
     Dates: start: 20101019, end: 20101019

REACTIONS (6)
  - URINARY INCONTINENCE [None]
  - FAECAL INCONTINENCE [None]
  - MALAISE [None]
  - CONVULSION [None]
  - ANXIETY [None]
  - DYSPNOEA [None]
